FAERS Safety Report 6379757-9 (Version None)
Quarter: 2009Q3

REPORT INFORMATION
  Report Type: 
  Country: None (occurrence: None)
  Receive Date: 20090928
  Receipt Date: 20090918
  Transmission Date: 20100115
  Serious: Yes (Other)
  Sender: FDA-Public Use
  Company Number: CA-SANOFI-SYNTHELABO-A01200909849

PATIENT
  Age: 87 Year
  Sex: Male

DRUGS (10)
  1. VITAMIN D [Concomitant]
     Indication: SUPPLEMENTATION THERAPY
     Dosage: 1 TABLET DAILY
     Route: 048
  2. CALCIUM-MAGNESIUM-ZINC [Concomitant]
     Indication: SUPPLEMENTATION THERAPY
     Dosage: 1 TABLET DAILY
     Route: 048
  3. MULTI-VITAMIN [Concomitant]
     Indication: SUPPLEMENTATION THERAPY
     Dosage: 1 TABLET DAILY
     Route: 048
  4. ACETYLSALICYLIC ACID [Concomitant]
     Dosage: 81 MG
     Route: 048
  5. APO-TIMOP [Concomitant]
     Indication: GLAUCOMA
     Dosage: 1 DROP TWICE DAILY
     Route: 047
  6. ELIGARD [Suspect]
     Indication: PROSTATE CANCER
     Dosage: UNK
     Route: 058
     Dates: start: 20080917, end: 20080917
  7. ELIGARD [Suspect]
     Dosage: UNK
     Route: 058
     Dates: start: 20090108, end: 20090108
  8. ELIGARD [Suspect]
     Dosage: 30 MG
     Route: 058
     Dates: start: 20090429, end: 20090429
  9. ELIGARD [Suspect]
     Dosage: ONCE EVERY 6 MONTHS 45 MG
     Route: 058
     Dates: start: 20090917, end: 20090917
  10. HYDROCHLOROTHIAZIDE [Concomitant]
     Indication: HYPERTENSION
     Dosage: 0.5 TALET DAILY
     Route: 048

REACTIONS (3)
  - ASCITES [None]
  - DYSPNOEA [None]
  - EAR DISCOMFORT [None]
